FAERS Safety Report 4979032-0 (Version None)
Quarter: 2006Q2

REPORT INFORMATION
  Report Type: 
  Country: None (occurrence: None)
  Receive Date: 20060419
  Receipt Date: 20060419
  Transmission Date: 20061013
  Serious: Yes (Hospitalization)
  Sender: FDA-Public Use
  Company Number: None

PATIENT
  Age: 47 Year
  Sex: Female
  Weight: 86.1834 kg

DRUGS (2)
  1. TAXOTERE [Suspect]
     Indication: BREAST CANCER
     Dosage: 142 MG Q 21 D IV
     Route: 042
     Dates: start: 20050915, end: 20060330
  2. GEMZAR [Suspect]
     Dosage: 1900 MG DAY 1 + 8 Q 21 D IV
     Route: 042
     Dates: start: 20050915, end: 20060330

REACTIONS (1)
  - METASTASES TO LUNG [None]
